FAERS Safety Report 21739223 (Version 1)
Quarter: 2022Q4

REPORT INFORMATION
  Report Type: Spontaneous
  Country: AU (occurrence: AU)
  Receive Date: 20221216
  Receipt Date: 20221216
  Transmission Date: 20230113
  Serious: Yes (Hospitalization)
  Sender: FDA-Public Use
  Company Number: AU-BAYER-2022A169852

PATIENT
  Age: 84 Year
  Sex: Male

DRUGS (1)
  1. XARELTO [Suspect]
     Active Substance: RIVAROXABAN
     Indication: Product used for unknown indication
     Dosage: 15 MG,
     Route: 048
     Dates: start: 20221201, end: 20221210

REACTIONS (5)
  - Illness [Unknown]
  - Pallor [Unknown]
  - Feeling of body temperature change [Unknown]
  - Malaise [Unknown]
  - Overdose [Unknown]
